FAERS Safety Report 6152490-4 (Version None)
Quarter: 2009Q2

REPORT INFORMATION
  Report Type: 
  Country: None (occurrence: None)
  Receive Date: 20090413
  Receipt Date: 20090403
  Transmission Date: 20091009
  Serious: Yes (Other)
  Sender: FDA-Public Use
  Company Number: PHHY2009BR13121

PATIENT
  Age: 31 Year
  Sex: Female
  Weight: 82 kg

DRUGS (6)
  1. FORASEQ [Suspect]
     Indication: NASAL DISCOMFORT
     Dosage: 2 INHALATIONS OF EACH ACTIVE INGREDIENT PER DAY
     Dates: start: 20081101
  2. FORASEQ [Suspect]
     Indication: RHINORRHOEA
  3. FORASEQ [Suspect]
     Indication: INCREASED UPPER AIRWAY SECRETION
  4. FORASEQ [Suspect]
     Indication: SNEEZING
  5. FORASEQ [Suspect]
     Indication: DYSPNOEA
  6. FORASEQ [Suspect]
     Indication: HOUSE DUST ALLERGY

REACTIONS (2)
  - SWELLING [None]
  - WEIGHT INCREASED [None]
